FAERS Safety Report 6495634-7 (Version None)
Quarter: 2009Q4

REPORT INFORMATION
  Report Type: 
  Country: None (occurrence: None)
  Receive Date: 20091214
  Receipt Date: 20090727
  Transmission Date: 20100525
  Serious: No
  Sender: FDA-Public Use
  Company Number: US-BRISTOL-MYERS SQUIBB COMPANY-14716765

PATIENT
  Age: 23 Year
  Sex: Female
  Weight: 63 kg

DRUGS (2)
  1. ABILIFY [Suspect]
     Indication: MANIA
  2. DEPAKOTE [Concomitant]

REACTIONS (4)
  - EXCESSIVE EYE BLINKING [None]
  - POSTURE ABNORMAL [None]
  - TARDIVE DYSKINESIA [None]
  - WEIGHT INCREASED [None]
